APPROVED DRUG PRODUCT: VORICONAZOLE
Active Ingredient: VORICONAZOLE
Strength: 50MG
Dosage Form/Route: TABLET;ORAL
Application: A206654 | Product #001 | TE Code: AB
Applicant: PRINSTON PHARMACEUTICAL INC
Approved: Aug 8, 2016 | RLD: No | RS: No | Type: RX